FAERS Safety Report 16021487 (Version 1)
Quarter: 2019Q1

REPORT INFORMATION
  Report Type: Spontaneous
  Country: GR (occurrence: GR)
  Receive Date: 20190301
  Receipt Date: 20190301
  Transmission Date: 20190418
  Serious: Yes (Hospitalization, Disabling, Other)
  Sender: FDA-Public Use
  Company Number: GR-AMGEN-GRCSP2019032126

PATIENT
  Age: 79 Year
  Sex: Female

DRUGS (5)
  1. PREZOLON [Concomitant]
     Active Substance: PREDNISOLONE
     Dosage: 1 DF, UNK
     Route: 048
  2. FOSAVANCE [Concomitant]
     Active Substance: ALENDRONATE SODIUM\CHOLECALCIFEROL
     Dosage: 1 DF, WEEKLY
     Route: 048
  3. ENBREL [Suspect]
     Active Substance: ETANERCEPT
     Indication: RHEUMATOID ARTHRITIS
     Dosage: 1 DF, WEEKLY
     Route: 058
     Dates: start: 200710, end: 201110
  4. ACCURETIC [Concomitant]
     Active Substance: HYDROCHLOROTHIAZIDE\QUINAPRIL HYDROCHLORIDE
     Dosage: 1 DF, UNK
     Route: 048
  5. LOBIVON [Concomitant]
     Active Substance: NEBIVOLOL HYDROCHLORIDE
     Dosage: 5 MG, UNK
     Route: 048

REACTIONS (1)
  - Transitional cell cancer of the renal pelvis and ureter [Not Recovered/Not Resolved]
